FAERS Safety Report 11900782 (Version 1)
Quarter: 2016Q1

REPORT INFORMATION
  Report Type: Report from Study
  Country: US (occurrence: US)
  Receive Date: 20160108
  Receipt Date: 20160108
  Transmission Date: 20160526
  Serious: No
  Sender: FDA-Public Use
  Company Number: US-ABBVIE-15P-163-1461224-00

PATIENT
  Sex: Male

DRUGS (1)
  1. VIEKIRA PAK [Suspect]
     Active Substance: DASABUVIR\OMBITASVIR\PARITAPREVIR\RITONAVIR
     Indication: HEPATITIS C
     Dosage: AS DIRECTED PER PACKAGE INSTRUCTIONS ORALLY
     Route: 048
     Dates: start: 20150624

REACTIONS (6)
  - Cough [Recovering/Resolving]
  - Sleep disorder [Recovering/Resolving]
  - Apathy [Recovering/Resolving]
  - Nausea [Recovering/Resolving]
  - Diarrhoea [Recovering/Resolving]
  - Depressed mood [Recovering/Resolving]
